FAERS Safety Report 8068567-2 (Version None)
Quarter: 2012Q1

REPORT INFORMATION
  Report Type: 
  Country: None (occurrence: None)
  Receive Date: 20120124
  Receipt Date: 20111114
  Transmission Date: 20120608
  Serious: No
  Sender: FDA-Public Use
  Company Number: US-AMGEN-USASP2011059723

PATIENT
  Age: 65 Year
  Sex: Female

DRUGS (6)
  1. ZANTAC [Concomitant]
     Dosage: 1 MG, QD
  2. PROLIA [Suspect]
     Indication: OSTEOPOROSIS
     Dates: start: 20110907
  3. CALCIUM W/VITAMIN D                /00188401/ [Concomitant]
     Dosage: 3 MG, QD
  4. PRILOSEC [Concomitant]
     Dosage: 1 MG, QD
  5. ZANTAC [Concomitant]
  6. MICARDIS [Concomitant]

REACTIONS (7)
  - SINUSITIS [None]
  - CONTUSION [None]
  - GASTROOESOPHAGEAL REFLUX DISEASE [None]
  - NAUSEA [None]
  - PNEUMONIA [None]
  - WEIGHT DECREASED [None]
  - BACK PAIN [None]
